FAERS Safety Report 17120927 (Version 2)
Quarter: 2020Q2

REPORT INFORMATION
  Report Type: Spontaneous
  Country: US (occurrence: US)
  Receive Date: 20191206
  Receipt Date: 20200529
  Transmission Date: 20200713
  Serious: No
  Sender: FDA-Public Use
  Company Number: US-UCBSA-2017026175

PATIENT
  Sex: Male

DRUGS (1)
  1. CIMZIA [Suspect]
     Active Substance: CERTOLIZUMAB PEGOL
     Indication: CROHN^S DISEASE
     Dosage: 400 MG, MONTHLY (QM)
     Route: 058
     Dates: start: 201703

REACTIONS (9)
  - Oropharyngeal pain [Unknown]
  - Headache [Unknown]
  - Nasopharyngitis [Unknown]
  - Malaise [Unknown]
  - Asthma [Unknown]
  - Pruritus [Unknown]
  - Crohn^s disease [Unknown]
  - Infection [Unknown]
  - Pyrexia [Unknown]

NARRATIVE: CASE EVENT DATE: 2017
